FAERS Safety Report 8122453-8 (Version None)
Quarter: 2012Q1

REPORT INFORMATION
  Report Type: 
  Country: None (occurrence: None)
  Receive Date: 20120208
  Receipt Date: 20120127
  Transmission Date: 20120608
  Serious: Yes (Other)
  Sender: FDA-Public Use
  Company Number: US-ELI_LILLY_AND_COMPANY-US201106008991

PATIENT
  Sex: Female

DRUGS (6)
  1. FORTEO [Suspect]
     Dosage: 20 UG, QD
  2. FORTEO [Suspect]
     Dosage: 20 UG, QD
  3. FORTEO [Suspect]
     Dosage: 20 UG, QD
  4. FORTEO [Suspect]
     Dosage: 20 UG, QD
  5. FORTEO [Suspect]
     Indication: OSTEOPOROSIS
     Dosage: 20 UG, QD
     Dates: start: 20110501
  6. FORTEO [Suspect]
     Dosage: 20 UG, QD

REACTIONS (15)
  - CARDIAC FAILURE [None]
  - ABDOMINAL DISCOMFORT [None]
  - JOINT SWELLING [None]
  - VISUAL IMPAIRMENT [None]
  - DIPLOPIA [None]
  - PARKINSON'S DISEASE [None]
  - MUSCULAR WEAKNESS [None]
  - ANXIETY [None]
  - HYPOACUSIS [None]
  - OEDEMA PERIPHERAL [None]
  - HAND DEFORMITY [None]
  - PAIN IN EXTREMITY [None]
  - DYSPNOEA [None]
  - ARTHRALGIA [None]
  - NAUSEA [None]
